FAERS Safety Report 12280535 (Version 1)
Quarter: 2016Q2

REPORT INFORMATION
  Report Type: Spontaneous
  Country: US (occurrence: None)
  Receive Date: 20160418
  Receipt Date: 20160418
  Transmission Date: 20160815
  Serious: No
  Sender: FDA-Public Use
  Company Number: None

PATIENT
  Age: 53 Year
  Sex: Male
  Weight: 117.48 kg

DRUGS (6)
  1. ROZEREM [Suspect]
     Active Substance: RAMELTEON
     Indication: INSOMNIA
     Dosage: 8MG 1 PILL AT BEDTIME BY MOUTH
     Route: 048
     Dates: start: 20140826, end: 20160405
  2. ASPRIN [Concomitant]
     Active Substance: ASPIRIN
  3. ACETAMINOPHEN. [Concomitant]
     Active Substance: ACETAMINOPHEN
  4. VERAMYST [Concomitant]
     Active Substance: FLUTICASONE FUROATE
  5. MONTELUKAST [Concomitant]
     Active Substance: MONTELUKAST SODIUM
  6. CELEBREX [Concomitant]
     Active Substance: CELECOXIB

REACTIONS (3)
  - Product quality issue [None]
  - Drug ineffective [None]
  - Abdominal pain upper [None]

NARRATIVE: CASE EVENT DATE: 20160226
